FAERS Safety Report 8332017-9 (Version None)
Quarter: 2012Q2

REPORT INFORMATION
  Report Type: 
  Country: None (occurrence: None)
  Receive Date: 20120502
  Receipt Date: 20120426
  Transmission Date: 20120825
  Serious: No
  Sender: FDA-Public Use
  Company Number: US-AMGEN-USASP2011032808

PATIENT
  Age: 42 Year
  Sex: Female

DRUGS (3)
  1. ENBREL [Suspect]
     Dosage: 50 MG, QWK
     Dates: start: 20110803
  2. ENBREL [Suspect]
     Indication: PSORIASIS
     Dosage: 50 MG, 2 TIMES/WK
     Route: 030
     Dates: start: 20110511, end: 20110803
  3. DIOVAN HCT [Concomitant]
     Dosage: UNK
     Route: 048

REACTIONS (8)
  - INJECTION SITE ERYTHEMA [None]
  - ALANINE AMINOTRANSFERASE INCREASED [None]
  - INJECTION SITE PAIN [None]
  - INJECTION SITE PRURITUS [None]
  - INJECTION SITE REACTION [None]
  - ASPARTATE AMINOTRANSFERASE INCREASED [None]
  - INJECTION SITE RASH [None]
  - INCORRECT ROUTE OF DRUG ADMINISTRATION [None]
